FAERS Safety Report 10989688 (Version 2)
Quarter: 2015Q3

REPORT INFORMATION
  Report Type: Report from Study
  Country: CA (occurrence: CA)
  Receive Date: 20150406
  Receipt Date: 20150812
  Transmission Date: 20151125
  Serious: Yes (Hospitalization, Other)
  Sender: FDA-Public Use
  Company Number: CA-AMGEN-CANSL2015003764

PATIENT
  Age: 82 Year
  Sex: Female
  Weight: 68.27 kg

DRUGS (4)
  1. GABAPENTINE [Concomitant]
     Active Substance: GABAPENTIN
     Dosage: 100 MG, BID
     Route: 048
  2. PROLIA [Suspect]
     Active Substance: DENOSUMAB
     Indication: OSTEOPOROSIS POSTMENOPAUSAL
     Dosage: 60 MG/ML, UNK
     Route: 065
     Dates: start: 20131016
  3. PREDNISONE. [Suspect]
     Active Substance: PREDNISONE
     Indication: GOUT
     Dosage: 40 MG, QD
     Route: 048
  4. COUMADIN [Concomitant]
     Active Substance: WARFARIN SODIUM
     Indication: DEEP VEIN THROMBOSIS

REACTIONS (11)
  - Gout [Unknown]
  - Arthritis infective [Unknown]
  - Arthralgia [Unknown]
  - Hyperparathyroidism secondary [Unknown]
  - Constipation [Unknown]
  - Head injury [Unknown]
  - Joint injury [Unknown]
  - Nasopharyngitis [Unknown]
  - Blood calcium decreased [Unknown]
  - Diarrhoea [Unknown]
  - Fall [Not Recovered/Not Resolved]

NARRATIVE: CASE EVENT DATE: 201410
